FAERS Safety Report 9348387 (Version 2)
Quarter: 2013Q3

REPORT INFORMATION
  Report Type: Spontaneous
  Country: IT (occurrence: IT)
  Receive Date: 20130614
  Receipt Date: 20130812
  Transmission Date: 20140515
  Serious: Yes (Hospitalization, Other)
  Sender: FDA-Public Use
  Company Number: IT-BRISTOL-MYERS SQUIBB COMPANY-19008689

PATIENT
  Age: 87 Year
  Sex: Female

DRUGS (8)
  1. COUMADIN TABS 5 MG [Suspect]
     Indication: ATRIAL FIBRILLATION
     Route: 048
     Dates: start: 20130129, end: 20130526
  2. OMEPRAZOLE [Concomitant]
  3. SIMVASTATIN [Concomitant]
  4. SEROQUEL [Concomitant]
     Dosage: TABLET
  5. TAPENTADOL HYDROCHLORIDE [Concomitant]
     Dosage: TABLET
  6. LASIX [Concomitant]
     Dosage: TABLET
  7. DELTACORTENE [Concomitant]
     Indication: ABDOMINAL PAIN
     Dosage: TABLET
     Dates: start: 20130516, end: 20130530
  8. DILTIAZEM ER [Concomitant]
     Dosage: CAPS

REACTIONS (2)
  - Abdominal wall haematoma [Recovering/Resolving]
  - Pelvic fracture [Unknown]
